FAERS Safety Report 18170459 (Version 2)
Quarter: 2022Q3

REPORT INFORMATION
  Report Type: Spontaneous
  Country: US (occurrence: US)
  Receive Date: 20200819
  Receipt Date: 20220707
  Transmission Date: 20221026
  Serious: No
  Sender: FDA-Public Use
  Company Number: US-JNJFOC-20200825346

PATIENT
  Age: 10 Year
  Sex: Male

DRUGS (3)
  1. RISPERDAL M-TAB [Suspect]
     Active Substance: RISPERIDONE
     Indication: Behaviour disorder
     Route: 048
     Dates: start: 2008, end: 20120918
  2. RISPERDAL M-TAB [Suspect]
     Active Substance: RISPERIDONE
     Indication: Psychotic disorder
  3. RISPERDAL M-TAB [Suspect]
     Active Substance: RISPERIDONE
     Indication: Thinking abnormal

REACTIONS (2)
  - Emotional disorder [Unknown]
  - Gynaecomastia [Unknown]

NARRATIVE: CASE EVENT DATE: 20120901
